FAERS Safety Report 6926198-9 (Version None)
Quarter: 2010Q3

REPORT INFORMATION
  Report Type: 
  Country: None (occurrence: None)
  Receive Date: 20100813
  Receipt Date: 20100813
  Transmission Date: 20110219
  Serious: Yes (Hospitalization)
  Sender: FDA-Public Use
  Company Number: None

PATIENT
  Sex: Female
  Weight: 92.5338 kg

DRUGS (1)
  1. CYMBALTA [Suspect]

REACTIONS (4)
  - AGITATION [None]
  - ANXIETY [None]
  - HYPERTENSION [None]
  - THINKING ABNORMAL [None]
